FAERS Safety Report 7570346-7 (Version None)
Quarter: 2011Q2

REPORT INFORMATION
  Report Type: 
  Country: None (occurrence: None)
  Receive Date: 20110620
  Receipt Date: 20110603
  Transmission Date: 20111010
  Serious: Yes (Hospitalization)
  Sender: FDA-Public Use
  Company Number: 2011MA006777

PATIENT
  Age: 52 Year
  Sex: Female

DRUGS (3)
  1. MIDAZOLAM HCL [Concomitant]
  2. TRIAMCINOLONE ACETONIDE [Suspect]
     Indication: NECK PAIN
     Dosage: 80 MG
  3. PROPOFOL [Concomitant]

REACTIONS (5)
  - SYRINGOMYELIA [None]
  - URINARY RETENTION [None]
  - POST PROCEDURAL COMPLICATION [None]
  - MONOPLEGIA [None]
  - SENSORY LOSS [None]
